FAERS Safety Report 8744554 (Version 2)
Quarter: 2013Q4

REPORT INFORMATION
  Report Type: Spontaneous
  Country: US (occurrence: US)
  Receive Date: 20120825
  Receipt Date: 20131031
  Transmission Date: 20140711
  Serious: No
  Sender: FDA-Public Use
  Company Number: US-009507513-2012SP029599

PATIENT
  Sex: Female
  Weight: 49.9 kg

DRUGS (2)
  1. IMPLANON [Suspect]
     Indication: CONTRACEPTION
     Dosage: 1 DF, UNK
     Route: 059
     Dates: start: 2009, end: 20120530
  2. IMPLANON [Suspect]
     Dosage: 1 DF, UNK

REACTIONS (1)
  - Medical device complication [Recovered/Resolved]
